FAERS Safety Report 6043687-2 (Version None)
Quarter: 2009Q1

REPORT INFORMATION
  Report Type: 
  Country: None (occurrence: None)
  Receive Date: 20090115
  Receipt Date: 20090115
  Transmission Date: 20090719
  Serious: Yes (Hospitalization)
  Sender: FDA-Public Use
  Company Number: None

PATIENT
  Sex: Male
  Weight: 69.5 kg

DRUGS (1)
  1. ZOSYN [Suspect]
     Indication: INFECTION
     Dosage: 3.375GM Q6 IV
     Route: 042
     Dates: start: 20081217, end: 20090103

REACTIONS (1)
  - HAEMOLYTIC ANAEMIA [None]
